FAERS Safety Report 6347078-6 (Version None)
Quarter: 2009Q3

REPORT INFORMATION
  Report Type: 
  Country: None (occurrence: None)
  Receive Date: 20090910
  Receipt Date: 20090831
  Transmission Date: 20100115
  Serious: Yes (Hospitalization)
  Sender: FDA-Public Use
  Company Number: FR-PURDUE-GBR-2009-0005538

PATIENT
  Sex: Male

DRUGS (4)
  1. OXYNORM [Suspect]
     Indication: BACK PAIN
     Dosage: UNK
     Route: 048
     Dates: start: 19980101
  2. OXYCONTIN [Suspect]
     Indication: BACK PAIN
     Dosage: UNK
     Route: 048
     Dates: start: 19980101
  3. NEURONTIN [Suspect]
     Indication: BACK PAIN
     Dosage: UNK
     Route: 048
     Dates: start: 20080901
  4. NEURONTIN [Suspect]
     Dosage: UNK
     Route: 048
     Dates: start: 19980101, end: 20070101

REACTIONS (2)
  - HYPOVITAMINOSIS [None]
  - OSTEOPOROTIC FRACTURE [None]
